FAERS Safety Report 7972480-6 (Version None)
Quarter: 2011Q4

REPORT INFORMATION
  Report Type: 
  Country: None (occurrence: None)
  Receive Date: 20111213
  Receipt Date: 20111203
  Transmission Date: 20120403
  Serious: Yes (Death, Hospitalization)
  Sender: FDA-Public Use
  Company Number: US-BRISTOL-MYERS SQUIBB COMPANY-16245326

PATIENT
  Age: 52 Year
  Sex: Female
  Weight: 76 kg

DRUGS (5)
  1. ACETAMINOPHEN [Concomitant]
     Indication: PAIN
  2. IPILIMUMAB [Suspect]
     Indication: MALIGNANT MELANOMA
     Dosage: LAST ADMINISTERED DOSE 18NOV11 ON DY1 Q12WKS
     Route: 042
     Dates: start: 20110624
  3. LEUKINE [Suspect]
     Indication: MALIGNANT MELANOMA
     Dosage: LAST ADMINISTERED DATE 20NOV11
  4. EFFEXOR [Concomitant]
  5. SYNTHROID [Concomitant]

REACTIONS (6)
  - CARDIAC ARREST [None]
  - ADRENAL INSUFFICIENCY [None]
  - OROPHARYNGEAL PAIN [None]
  - COUGH [None]
  - PYREXIA [None]
  - SEPSIS [None]
